FAERS Safety Report 14525631 (Version 2)
Quarter: 2018Q1

REPORT INFORMATION
  Report Type: Spontaneous
  Country: TW (occurrence: TW)
  Receive Date: 20180213
  Receipt Date: 20180220
  Transmission Date: 20180509
  Serious: Yes (Other)
  Sender: FDA-Public Use
  Company Number: TW-PFIZER INC-2018060191

PATIENT
  Age: 7 Decade
  Sex: Female

DRUGS (1)
  1. DOSTINEX [Suspect]
     Active Substance: CABERGOLINE
     Indication: ACROMEGALY
     Dosage: 1 DF, WEEKLY

REACTIONS (2)
  - Product use in unapproved indication [Unknown]
  - Ventricular tachycardia [Recovered/Resolved]
